FAERS Safety Report 18372446 (Version 2)
Quarter: 2020Q4

REPORT INFORMATION
  Report Type: Spontaneous
  Country: JP (occurrence: JP)
  Receive Date: 20201012
  Receipt Date: 20201230
  Transmission Date: 20210114
  Serious: Yes (Death, Other)
  Sender: FDA-Public Use
  Company Number: JP-009507513-2010JPN000513J

PATIENT
  Age: 71 Year
  Sex: Male

DRUGS (3)
  1. ZERBAXA [Suspect]
     Active Substance: CEFTOLOZANE SULFATE\TAZOBACTAM SODIUM
     Indication: PERITONITIS
  2. ZERBAXA [Suspect]
     Active Substance: CEFTOLOZANE SULFATE\TAZOBACTAM SODIUM
     Indication: PSEUDOMONAS INFECTION
     Dosage: 150 MILLIGRAM, TID
     Route: 041
     Dates: start: 202008, end: 202009
  3. ANAEMETRO [Concomitant]
     Active Substance: METRONIDAZOLE
     Indication: PERITONITIS
     Dosage: 500 MILLIGRAM, BID
     Route: 041
     Dates: start: 202008, end: 202009

REACTIONS (1)
  - Peritonitis [Fatal]

NARRATIVE: CASE EVENT DATE: 2020
